FAERS Safety Report 5478814-9 (Version None)
Quarter: 2007Q4

REPORT INFORMATION
  Report Type: 
  Country: None (occurrence: None)
  Receive Date: 20071005
  Receipt Date: 20071001
  Transmission Date: 20080405
  Serious: Yes (Death, Hospitalization, Other)
  Sender: FDA-Public Use
  Company Number: GB-ABBOTT-07P-167-0419265-00

PATIENT
  Sex: Female

DRUGS (2)
  1. HUMIRA [Suspect]
     Indication: RHEUMATOID ARTHRITIS
     Route: 058
     Dates: end: 20071001
  2. WARFARIN SODIUM [Concomitant]
     Indication: DRUG USE FOR UNKNOWN INDICATION

REACTIONS (8)
  - CEREBRAL HAEMORRHAGE [None]
  - CYST [None]
  - FALL [None]
  - HAEMORRHAGIC CYST [None]
  - KIDNEY INFECTION [None]
  - MOBILITY DECREASED [None]
  - PERIPHERAL VASCULAR DISORDER [None]
  - SYNOVIAL DISORDER [None]
